FAERS Safety Report 9663637 (Version 4)
Quarter: 2014Q1

REPORT INFORMATION
  Report Type: Spontaneous
  Country: US (occurrence: US)
  Receive Date: 20131101
  Receipt Date: 20140113
  Transmission Date: 20141002
  Serious: No
  Sender: FDA-Public Use
  Company Number: US-PFIZER INC-2013311907

PATIENT
  Age: 46 Year
  Sex: Male

DRUGS (1)
  1. LYRICA [Suspect]
     Indication: ARTHRALGIA
     Dosage: 200 MG (TWO CAPSULES OF 100 MG), 3X/DAY
     Route: 048

REACTIONS (2)
  - Off label use [Unknown]
  - Limb discomfort [Unknown]
